FAERS Safety Report 9263968 (Version 5)
Quarter: 2013Q4

REPORT INFORMATION
  Report Type: Spontaneous
  Country: FR (occurrence: FR)
  Receive Date: 20130430
  Receipt Date: 20131231
  Transmission Date: 20140711
  Serious: Yes (Hospitalization)
  Sender: FDA-Public Use
  Company Number: FR-GLAXOSMITHKLINE-B0886487A

PATIENT
  Age: 79 Year
  Sex: Female

DRUGS (13)
  1. TRACRIUM [Suspect]
     Indication: GENERAL ANAESTHESIA
     Dosage: 30MG PER DAY
     Route: 042
     Dates: start: 20130205, end: 20130205
  2. ZOPHREN [Suspect]
     Indication: PROPHYLAXIS OF NAUSEA AND VOMITING
     Route: 065
  3. BLEU PATENTE [Suspect]
     Indication: PRODUCT USED FOR UNKNOWN INDICATION
     Route: 058
     Dates: start: 20130205, end: 20130205
  4. CEPHAZOLIN [Suspect]
     Indication: ANTIBIOTIC PROPHYLAXIS
     Dosage: 2G PER DAY
     Route: 042
     Dates: start: 20130205, end: 20130205
  5. SUFENTANIL [Suspect]
     Indication: GENERAL ANAESTHESIA
     Route: 042
     Dates: start: 20130205, end: 20130205
  6. DIPRIVAN [Suspect]
     Indication: GENERAL ANAESTHESIA
     Dosage: 140MG PER DAY
     Route: 042
     Dates: start: 20130205, end: 20130205
  7. KETAMINE [Suspect]
     Indication: GENERAL ANAESTHESIA
     Route: 065
     Dates: start: 20130205, end: 20130205
  8. DEXAMETHASONE [Suspect]
     Indication: GENERAL ANAESTHESIA
     Dosage: 8MG PER DAY
     Route: 042
     Dates: start: 20130205, end: 20130205
  9. PERFALGAN [Suspect]
     Indication: PAIN
     Dosage: 1G PER DAY
     Route: 042
  10. CONTRAMAL [Suspect]
     Indication: PAIN
     Dosage: 100MG PER DAY
     Route: 065
  11. DROLEPTAN [Suspect]
     Dates: start: 20130205, end: 20130205
  12. CHLORHEXIDINE [Suspect]
     Indication: INFECTION PROPHYLAXIS
     Route: 061
  13. FEMARA [Concomitant]
     Indication: BREAST CANCER

REACTIONS (4)
  - Hypersensitivity [Recovered/Resolved]
  - Urticaria [Recovered/Resolved]
  - Hypotension [Recovered/Resolved]
  - Face oedema [Recovered/Resolved]
